FAERS Safety Report 23886548 (Version 1)
Quarter: 2024Q2

REPORT INFORMATION
  Report Type: Spontaneous
  Country: JP (occurrence: JP)
  Receive Date: 20240522
  Receipt Date: 20240522
  Transmission Date: 20240715
  Serious: Yes (Hospitalization)
  Sender: FDA-Public Use
  Company Number: JP-Eisai-202401751_LEN_P_1

PATIENT
  Sex: Female

DRUGS (1)
  1. LENVIMA [Suspect]
     Active Substance: LENVATINIB
     Indication: Thyroid cancer
     Route: 048
     Dates: end: 202405

REACTIONS (3)
  - Hepatic function abnormal [Unknown]
  - Ventricular extrasystoles [Unknown]
  - Renal impairment [Unknown]

NARRATIVE: CASE EVENT DATE: 20240507
